FAERS Safety Report 20697603 (Version 2)
Quarter: 2022Q2

REPORT INFORMATION
  Report Type: Report from Study
  Country: FR (occurrence: None)
  Receive Date: 20220411
  Receipt Date: 20220413
  Transmission Date: 20220720
  Serious: Yes (Hospitalization)
  Sender: FDA-Public Use
  Company Number: FR-ROCHE-3069053

PATIENT
  Age: 77 Year
  Sex: Female
  Weight: 56 kg

DRUGS (13)
  1. ATEZOLIZUMAB [Suspect]
     Active Substance: ATEZOLIZUMAB
     Indication: Triple negative breast cancer
     Dosage: START DATE OF MOST RECENT DOSE OF STUDY DRUG PRIOR TO AE: 10-MAR-2022
     Route: 041
     Dates: start: 20210923
  2. PACLITAXEL [Suspect]
     Active Substance: PACLITAXEL
     Indication: Triple negative breast cancer
     Dosage: START DATE OF MOST RECENT DOSE OF STUDY DRUG PRIOR TO AE: 18-MAR-2022 AT 75 MG/M2
     Route: 042
     Dates: start: 20210923
  3. BISOPROLOL [Concomitant]
     Active Substance: BISOPROLOL
  4. IRBESARTAN [Concomitant]
     Active Substance: IRBESARTAN
  5. METFORMIN HYDROCHLORIDE [Concomitant]
     Active Substance: METFORMIN HYDROCHLORIDE
  6. ALLOPURINOL [Concomitant]
     Active Substance: ALLOPURINOL
  7. EPOETINA [Concomitant]
     Dates: start: 20211119
  8. CHLORHEXIDINE [Concomitant]
     Active Substance: CHLORHEXIDINE
     Dates: start: 20211126
  9. RANITIDINE HYDROCHLORIDE [Concomitant]
     Active Substance: RANITIDINE HYDROCHLORIDE
     Dates: start: 20210923
  10. ONDANSETRON [Concomitant]
     Active Substance: ONDANSETRON
     Dates: start: 20210923
  11. POLARAMINE [Concomitant]
     Active Substance: DEXCHLORPHENIRAMINE MALEATE
     Dates: start: 20210923
  12. FLUCONAZOLE [Concomitant]
     Active Substance: FLUCONAZOLE
     Dates: start: 20220318
  13. ZINC [Concomitant]
     Active Substance: ZINC
     Dates: start: 20211126

REACTIONS (1)
  - Electrolyte imbalance [Recovered/Resolved]

NARRATIVE: CASE EVENT DATE: 20220404
